FAERS Safety Report 6610797-8 (Version None)
Quarter: 2010Q1

REPORT INFORMATION
  Report Type: 
  Country: None (occurrence: None)
  Receive Date: 20100302
  Receipt Date: 20100224
  Transmission Date: 20100710
  Serious: Yes (Other)
  Sender: FDA-Public Use
  Company Number: JP-GENENTECH-244298

PATIENT
  Sex: Female

DRUGS (6)
  1. RITUXAN [Suspect]
     Indication: NON-HODGKIN'S LYMPHOMA
     Dosage: UNK, 1/MONTH
  2. ADRIACIN [Concomitant]
     Indication: NON-HODGKIN'S LYMPHOMA
  3. ENDOXAN [Concomitant]
     Indication: NON-HODGKIN'S LYMPHOMA
  4. ONCOVIN [Concomitant]
     Indication: NON-HODGKIN'S LYMPHOMA
  5. PREDONINE [Concomitant]
     Indication: NON-HODGKIN'S LYMPHOMA
  6. NEUPOGEN [Concomitant]
     Indication: DRUG USE FOR UNKNOWN INDICATION

REACTIONS (1)
  - PNEUMOCYSTIS JIROVECI PNEUMONIA [None]
